FAERS Safety Report 15333519 (Version 1)
Quarter: 2018Q3

REPORT INFORMATION
  Report Type: Spontaneous
  Country: US (occurrence: US)
  Receive Date: 20180830
  Receipt Date: 20180830
  Transmission Date: 20181010
  Serious: Yes (Other)
  Sender: FDA-Public Use
  Company Number: US-NAPPMUNDI-USA-2018-0144546

PATIENT
  Age: 76 Year
  Sex: Female

DRUGS (1)
  1. OXYCODONE HYDROCHLORIDE (SIMILAR TO NDA 22?272) [Suspect]
     Active Substance: OXYCODONE HYDROCHLORIDE
     Indication: PAIN
     Dosage: 10 MG, UP TO 6 PER DAY
     Route: 048

REACTIONS (15)
  - Complication of device insertion [Not Recovered/Not Resolved]
  - Arterial injury [Unknown]
  - Finger deformity [Not Recovered/Not Resolved]
  - Herpes zoster [Unknown]
  - Pain in extremity [Not Recovered/Not Resolved]
  - Venous injury [Unknown]
  - Intervertebral disc compression [Not Recovered/Not Resolved]
  - Musculoskeletal pain [Not Recovered/Not Resolved]
  - Hand fracture [Not Recovered/Not Resolved]
  - Intervertebral disc protrusion [Not Recovered/Not Resolved]
  - Fall [Recovered/Resolved]
  - Cervical vertebral fracture [Unknown]
  - Foot deformity [Not Recovered/Not Resolved]
  - Back pain [Not Recovered/Not Resolved]
  - Medical device implantation [Not Recovered/Not Resolved]

NARRATIVE: CASE EVENT DATE: 2017
